FAERS Safety Report 25126288 (Version 4)
Quarter: 2025Q2

REPORT INFORMATION
  Report Type: Spontaneous
  Country: PT (occurrence: PT)
  Receive Date: 20250327
  Receipt Date: 20250612
  Transmission Date: 20250717
  Serious: No
  Sender: ALEXION PHARMACEUTICALS
  Company Number: PT-AstraZeneca-CH-00831104AP

PATIENT
  Age: 91 Year

DRUGS (1)
  1. BUDESONIDE\FORMOTEROL\GLYCOPYRRONIUM [Suspect]
     Active Substance: BUDESONIDE\FORMOTEROL\GLYCOPYRRONIUM
     Indication: Asthma
     Dosage: 160 MICROGRAM, BID

REACTIONS (6)
  - Product dose omission issue [Unknown]
  - Drug delivery system issue [Unknown]
  - Device issue [Unknown]
  - Off label use [Unknown]
  - Incorrect dose administered [Unknown]
  - Bedridden [Unknown]
